FAERS Safety Report 18558769 (Version 1)
Quarter: 2020Q4

REPORT INFORMATION
  Report Type: Spontaneous
  Country: US (occurrence: US)
  Receive Date: 20201125
  Receipt Date: 20201125
  Transmission Date: 20210114
  Serious: Yes (Other)
  Sender: FDA-Public Use
  Company Number: None

PATIENT
  Sex: Male

DRUGS (2)
  1. GANCICLOVIR. [Suspect]
     Active Substance: GANCICLOVIR
  2. FOSCAVIR [Suspect]
     Active Substance: FOSCARNET SODIUM
     Indication: HERPES VIRUS INFECTION
     Dosage: ?          OTHER ROUTE:IV?
     Dates: end: 20201106

REACTIONS (8)
  - Hypoaesthesia [None]
  - Infusion related reaction [None]
  - Hypoaesthesia oral [None]
  - Vomiting [None]
  - Therapy interrupted [None]
  - Chills [None]
  - Nausea [None]
  - Retching [None]
